FAERS Safety Report 11139785 (Version 1)
Quarter: 2015Q2

REPORT INFORMATION
  Report Type: Spontaneous
  Country: US (occurrence: US)
  Receive Date: 20150527
  Receipt Date: 20150527
  Transmission Date: 20150821
  Serious: No
  Sender: FDA-Public Use
  Company Number: US-BAYER-2015-272381

PATIENT
  Age: 23 Year
  Sex: Female

DRUGS (2)
  1. SKYLA [Suspect]
     Active Substance: LEVONORGESTREL
     Indication: MENORRHAGIA
  2. SKYLA [Suspect]
     Active Substance: LEVONORGESTREL
     Indication: OLIGOMENORRHOEA
     Dosage: 14 MCG/24HR, CONT
     Route: 015
     Dates: start: 20150520

REACTIONS (2)
  - Procedural pain [Recovered/Resolved]
  - Off label use [None]

NARRATIVE: CASE EVENT DATE: 20150520
